FAERS Safety Report 10523971 (Version 1)
Quarter: 2014Q4

REPORT INFORMATION
  Report Type: Report from Study
  Country: KR (occurrence: KR)
  Receive Date: 20141017
  Receipt Date: 20141017
  Transmission Date: 20150528
  Serious: Yes (Death)
  Sender: FDA-Public Use
  Company Number: KR-AMGEN-KOROT2014079229

PATIENT
  Age: 74 Year
  Sex: Male

DRUGS (22)
  1. CISPLATIN. [Concomitant]
     Active Substance: CISPLATIN
     Dosage: 37 MG, UNK
     Route: 042
     Dates: start: 20140918, end: 20140921
  2. PROPACETAMOL HCL [Concomitant]
     Dosage: 2 G, UNK
     Route: 042
     Dates: start: 20140926, end: 20140929
  3. APREPITANT. [Concomitant]
     Active Substance: APREPITANT
     Dosage: 80 MG, UNK
     Route: 048
     Dates: start: 20140919, end: 20140920
  4. RIFAMPIN. [Concomitant]
     Active Substance: RIFAMPIN
     Dosage: 450 MG, UNK
     Route: 048
     Dates: start: 20140920, end: 20140930
  5. MEROPENEM TRIHYDRATE [Concomitant]
     Active Substance: MEROPENEM
     Dosage: 1500 MG, UNK
     Route: 042
     Dates: start: 20140926, end: 20140930
  6. METHYLPREDNISOLONE. [Concomitant]
     Active Substance: METHYLPREDNISOLONE
     Dosage: 500 MG, UNK
     Route: 042
     Dates: start: 20140918, end: 20140921
  7. CYTARABINE. [Concomitant]
     Active Substance: CYTARABINE
     Dosage: 2380 MG, UNK
     Route: 042
     Dates: start: 20140918, end: 20140921
  8. CASPOFUNGIN ACETATE [Concomitant]
     Active Substance: CASPOFUNGIN ACETATE
     Dosage: 50 MG, UNK
     Route: 042
     Dates: start: 20140927, end: 20140930
  9. VANCOMYCIN HCL [Concomitant]
     Active Substance: VANCOMYCIN HYDROCHLORIDE
     Dosage: 2 G, UNK
     Route: 042
     Dates: start: 20140926, end: 20140929
  10. RAMOSETRON HCL [Concomitant]
     Dosage: 0.1 MG, UNK
     Route: 048
     Dates: start: 20140920, end: 20140921
  11. PYRAZINAMIDE. [Concomitant]
     Active Substance: PYRAZINAMIDE
     Dosage: 1500 MG, UNK
     Route: 048
     Dates: start: 20140920, end: 20140930
  12. SALBUTAMOL SULFATE [Concomitant]
     Active Substance: ALBUTEROL SULFATE
     Dosage: 20 ML, UNK
     Route: 055
     Dates: start: 20140925, end: 20140930
  13. MEGESTROL ACETATE. [Concomitant]
     Active Substance: MEGESTROL ACETATE
     Dosage: 1PK,UNK
     Route: 048
     Dates: start: 20140922, end: 20140930
  14. SEPTRIN [Concomitant]
     Active Substance: SULFAMETHOXAZOLE\TRIMETHOPRIM
     Dosage: 2 TAB,UNK
     Route: 048
     Dates: start: 20140916, end: 20140930
  15. GRAN [Suspect]
     Active Substance: FILGRASTIM
     Indication: FEBRILE NEUTROPENIA
     Dosage: 150 MUG, AS NEEDED
     Route: 058
     Dates: start: 20140926, end: 20140928
  16. ETOPOSIDE. [Concomitant]
     Active Substance: ETOPOSIDE
     Dosage: 71 MG, UNK
     Route: 042
     Dates: start: 20140918, end: 20140921
  17. FUROSEMIDE. [Concomitant]
     Active Substance: FUROSEMIDE
     Dosage: 20 MG, UNK
     Route: 042
     Dates: start: 20140918, end: 20140930
  18. G-LASTA [Suspect]
     Active Substance: PEGFILGRASTIM
     Indication: PROPHYLAXIS
     Dosage: 6 MG, Q3WK
     Route: 058
     Dates: start: 20140923
  19. ETHAMBUTOL HCL [Concomitant]
     Active Substance: ETHAMBUTOL HYDROCHLORIDE
     Dosage: 800 MG, UNK
     Route: 048
     Dates: start: 20140920, end: 20140930
  20. ISONIAZID. [Concomitant]
     Active Substance: ISONIAZID
     Dosage: 300 MG, UNK
     Route: 048
     Dates: start: 20140920, end: 20140930
  21. TNA PERI [Concomitant]
     Dosage: 1680 ML, UNK
     Route: 042
     Dates: start: 20140913, end: 20140930
  22. FLUCONAZOLE. [Concomitant]
     Active Substance: FLUCONAZOLE
     Dosage: 200 MG, UNK
     Route: 048
     Dates: start: 20140916, end: 20140925

REACTIONS (4)
  - Malignant neoplasm progression [None]
  - Febrile neutropenia [Fatal]
  - Disease progression [Fatal]
  - Lymphoma [None]

NARRATIVE: CASE EVENT DATE: 20140926
